FAERS Safety Report 4530420-6 (Version None)
Quarter: 2004Q4

REPORT INFORMATION
  Report Type: 
  Country: None (occurrence: None)
  Receive Date: 20041217
  Receipt Date: 20041214
  Transmission Date: 20050328
  Serious: Yes (Death)
  Sender: FDA-Public Use
  Company Number: US-BRISTOL-MYERS SQUIBB COMPANY-12796009

PATIENT
  Age: 50 Year
  Sex: Male

DRUGS (1)
  1. MEGACE [Suspect]
     Route: 048

REACTIONS (1)
  - DEATH [None]
